FAERS Safety Report 16070982 (Version 1)
Quarter: 2019Q1

REPORT INFORMATION
  Report Type: Spontaneous
  Country: TR (occurrence: TR)
  Receive Date: 20190314
  Receipt Date: 20190314
  Transmission Date: 20190418
  Serious: Yes (Hospitalization, Other)
  Sender: FDA-Public Use
  Company Number: TR-TEVA-2019-TR-1023237

PATIENT
  Age: 72 Year
  Sex: Male

DRUGS (1)
  1. CAPECITABINE. [Suspect]
     Active Substance: CAPECITABINE
     Indication: CHOLANGIOCARCINOMA
     Dosage: 500 MILLIGRAM DAILY;
     Route: 065

REACTIONS (5)
  - Corneal erosion [Recovered/Resolved]
  - Lagophthalmos [Recovered/Resolved]
  - Interstitial granulomatous dermatitis [Recovered/Resolved]
  - Ectropion [Recovered/Resolved]
  - Eyelid retraction [Recovered/Resolved]
